FAERS Safety Report 17582277 (Version 1)
Quarter: 2020Q1

REPORT INFORMATION
  Report Type: Spontaneous
  Country: US (occurrence: US)
  Receive Date: 20200325
  Receipt Date: 20200325
  Transmission Date: 20200409
  Serious: No
  Sender: FDA-Public Use
  Company Number: NVSC2020US081673

PATIENT
  Sex: Male

DRUGS (2)
  1. MEKINIST [Suspect]
     Active Substance: TRAMETINIB DIMETHYL SULFOXIDE
     Indication: MALIGNANT MELANOMA
     Dosage: 100 MG (EVERY 12 HOURS).
     Route: 048
     Dates: start: 20191115
  2. TAFINLAR [Suspect]
     Active Substance: DABRAFENIB MESYLATE
     Indication: MALIGNANT MELANOMA
     Dosage: 2 MG, UNKNOWN
     Route: 048
     Dates: start: 20191115

REACTIONS (3)
  - Night sweats [Unknown]
  - Chills [Unknown]
  - Tremor [Unknown]
